FAERS Safety Report 19120928 (Version 3)
Quarter: 2022Q3

REPORT INFORMATION
  Report Type: Spontaneous
  Country: US (occurrence: US)
  Receive Date: 20210412
  Receipt Date: 20220704
  Transmission Date: 20221027
  Serious: Yes (Other)
  Sender: FDA-Public Use
  Company Number: US-ALLERGAN-2045936US

PATIENT
  Sex: Male

DRUGS (2)
  1. TIMOLOL MALEATE [Suspect]
     Active Substance: TIMOLOL MALEATE
     Indication: Glaucoma
     Dosage: 1 DROP IN THE MORNING AND ONE DROP AT NIGHT
  2. XALATAN [Suspect]
     Active Substance: LATANOPROST
     Indication: Glaucoma
     Dosage: 1 DROP IN THE MORNING AND ONE DROP AT NIGHT

REACTIONS (3)
  - Blood pressure increased [Unknown]
  - Fall [Recovered/Resolved]
  - Drug ineffective [Unknown]
